FAERS Safety Report 9752666 (Version 1)
Quarter: 2013Q4

REPORT INFORMATION
  Report Type: Spontaneous
  Country: US (occurrence: None)
  Receive Date: 20131212
  Receipt Date: 20131212
  Transmission Date: 20140711
  Serious: Yes (Other)
  Sender: FDA-Public Use
  Company Number: None

PATIENT
  Age: 72 Year
  Sex: Female
  Weight: 61.24 kg

DRUGS (1)
  1. FLUOROURACIL [Suspect]
     Indication: PRECANCEROUS CELLS PRESENT
     Dosage: APPLY 2X   2X DAILY  3 WEEKS
     Dates: start: 20131021

REACTIONS (2)
  - Herpes zoster [None]
  - Pain [None]
